FAERS Safety Report 10146871 (Version 1)
Quarter: 2014Q2

REPORT INFORMATION
  Report Type: Spontaneous
  Country: US (occurrence: None)
  Receive Date: 20140430
  Receipt Date: 20140430
  Transmission Date: 20141212
  Serious: Yes (Hospitalization)
  Sender: FDA-Public Use
  Company Number: None

PATIENT
  Age: 76 Year
  Sex: Male

DRUGS (8)
  1. GENTAMICIN [Suspect]
     Indication: BACTERAEMIA
     Route: 042
     Dates: start: 20130701, end: 20130708
  2. DAPTOMYCIN [Concomitant]
  3. SPIRONOLACTONE [Concomitant]
  4. ASPIRIN [Concomitant]
  5. ENOXAPARIN [Concomitant]
  6. LEVOTHYROXINE [Concomitant]
  7. MULTIVITAMIN [Concomitant]
  8. SOTALOL [Concomitant]

REACTIONS (1)
  - Renal injury [None]
